FAERS Safety Report 6420995-4 (Version None)
Quarter: 2009Q4

REPORT INFORMATION
  Report Type: 
  Country: None (occurrence: None)
  Receive Date: 20091028
  Receipt Date: 20091015
  Transmission Date: 20100525
  Serious: No
  Sender: FDA-Public Use
  Company Number: 900928435-AKO-4982AE

PATIENT

DRUGS (1)
  1. GENTAK [Suspect]
     Dosage: OPHTHALMIC
     Route: 047
     Dates: start: 20091014

REACTIONS (3)
  - DERMATITIS ALLERGIC [None]
  - NONSPECIFIC REACTION [None]
  - REACTION TO PRESERVATIVES [None]
